FAERS Safety Report 6999582-5 (Version None)
Quarter: 2010Q3

REPORT INFORMATION
  Report Type: 
  Country: None (occurrence: None)
  Receive Date: 20100920
  Receipt Date: 20070614
  Transmission Date: 20110219
  Serious: Yes (Hospitalization)
  Sender: FDA-Public Use
  Company Number: US-ASTRAZENECA-2006UW23130

PATIENT
  Age: 24 Year
  Sex: Female
  Weight: 124.7 kg

DRUGS (16)
  1. SEROQUEL [Suspect]
     Indication: DEPRESSION
     Route: 048
     Dates: start: 20040901
  2. SEROQUEL [Suspect]
     Indication: INSOMNIA
     Route: 048
     Dates: start: 20040901
  3. SEROQUEL [Suspect]
     Dosage: 25 MG-250 MG
     Route: 048
     Dates: start: 20040901
  4. SEROQUEL [Suspect]
     Dosage: 25 MG-250 MG
     Route: 048
     Dates: start: 20040901
  5. GEODON [Concomitant]
     Dates: start: 20060101
  6. HALDOL [Concomitant]
  7. RISPERDAL [Concomitant]
  8. DIAMOX SRC [Concomitant]
     Indication: HEADACHE
     Dosage: 500 MG-2000 MG
     Dates: start: 20050622
  9. DIAMOX SRC [Concomitant]
     Indication: PAPILLOEDEMA
     Dosage: 500 MG-2000 MG
     Dates: start: 20050622
  10. LEXAPRO [Concomitant]
     Indication: DEPRESSION
     Dosage: 10 MG-30 MG
     Dates: start: 20041029
  11. GLYBURIDE [Concomitant]
     Dates: start: 20050501
  12. WELLBUTRIN XL [Concomitant]
     Dates: start: 20041029
  13. HYDROXYZINE PAM [Concomitant]
     Dates: start: 20041029
  14. DICLOFENAC SODIUM [Concomitant]
     Dates: start: 20041207
  15. PROMETHAZINE [Concomitant]
     Dates: start: 20050214
  16. PREVACID [Concomitant]
     Dates: start: 20050304

REACTIONS (4)
  - DIABETES MELLITUS [None]
  - DIABETES MELLITUS INADEQUATE CONTROL [None]
  - HYPOGLYCAEMIA [None]
  - KETOACIDOSIS [None]
